FAERS Safety Report 5451862-0 (Version None)
Quarter: 2007Q3

REPORT INFORMATION
  Report Type: 
  Country: None (occurrence: None)
  Receive Date: 20070803
  Receipt Date: 20070116
  Transmission Date: 20080115
  Serious: Yes (Hospitalization)
  Sender: FDA-Public Use
  Company Number: 2007SP000891

PATIENT
  Age: 64 Year
  Sex: Female

DRUGS (11)
  1. INTRON A [Suspect]
     Indication: METASTATIC MALIGNANT MELANOMA
     Dosage: 10 MIU;TIW;SC; 10 MIU; TIW; SC
     Route: 058
     Dates: start: 20060925, end: 20061229
  2. INTRON A [Suspect]
     Indication: METASTATIC MALIGNANT MELANOMA
     Dosage: 10 MIU;TIW;SC; 10 MIU; TIW; SC
     Route: 058
     Dates: start: 20070115
  3. LIPITOR [Concomitant]
  4. BENICAR [Concomitant]
  5. COMPAZINE [Concomitant]
  6. FISH OIL [Concomitant]
  7. CALCIUM [Concomitant]
  8. VITAMIN A [Concomitant]
  9. VITAMIN D [Concomitant]
  10. POTASSIUM CHLORIDE [Concomitant]
  11. L-LYSINE [Concomitant]

REACTIONS (1)
  - CONVULSION [None]
